FAERS Safety Report 16737118 (Version 2)
Quarter: 2020Q1

REPORT INFORMATION
  Report Type: Spontaneous
  Country: GB (occurrence: GB)
  Receive Date: 20190823
  Receipt Date: 20200310
  Transmission Date: 20200409
  Serious: Yes (Disabling, Other)
  Sender: FDA-Public Use
  Company Number: GB-TEVA-2019-GB-1095662

PATIENT
  Age: 50 Year
  Sex: Male
  Weight: 95 kg

DRUGS (4)
  1. ENNOGEN PHARMA ALLOPURINOL [Suspect]
     Active Substance: ALLOPURINOL
     Indication: GOUT
     Dosage: 300 MG
     Route: 048
     Dates: start: 19990701, end: 20190701
  2. CRESCENT PHARMA ALLOPURINOL [Suspect]
     Active Substance: ALLOPURINOL
     Indication: GOUT
     Dosage: 300 MILLIGRAM
     Route: 048
     Dates: start: 19990701, end: 20190701
  3. BRISTOL LABS ALLOPURINOL [Suspect]
     Active Substance: ALLOPURINOL
     Route: 065
  4. SANDOZ LTD OMEPRAZOLE [Suspect]
     Active Substance: OMEPRAZOLE
     Dosage: 20 MILLIGRAM
     Route: 048
     Dates: start: 20070404, end: 20190701

REACTIONS (8)
  - Product substitution issue [Unknown]
  - Fatigue [Unknown]
  - Dizziness [Unknown]
  - Erythema multiforme [Recovering/Resolving]
  - Hypertension [Unknown]
  - Eye disorder [Unknown]
  - Drug reaction with eosinophilia and systemic symptoms [Recovering/Resolving]
  - Eosinophil count increased [Unknown]

NARRATIVE: CASE EVENT DATE: 20190624
